FAERS Safety Report 12628780 (Version 1)
Quarter: 2016Q3

REPORT INFORMATION
  Report Type: Spontaneous
  Country: US (occurrence: US)
  Receive Date: 20160808
  Receipt Date: 20160808
  Transmission Date: 20161109
  Serious: No
  Sender: FDA-Public Use
  Company Number: US-AUROBINDO-AUR-APU-2016-06176

PATIENT
  Sex: Male

DRUGS (2)
  1. LEVOFLOXACIN TABLETS 500MG [Suspect]
     Active Substance: LEVOFLOXACIN
     Indication: BRONCHITIS
  2. LEVOFLOXACIN TABLETS 500MG [Suspect]
     Active Substance: LEVOFLOXACIN
     Indication: NASOPHARYNGITIS
     Dosage: 500 MG, DAILY
     Route: 065
     Dates: start: 20160512

REACTIONS (5)
  - Dry mouth [Recovered/Resolved]
  - Insomnia [Recovered/Resolved]
  - Incorrect dose administered [Recovered/Resolved]
  - Muscle spasms [Recovered/Resolved]
  - Feeling hot [Recovered/Resolved]
